FAERS Safety Report 14245400 (Version 1)
Quarter: 2017Q4

REPORT INFORMATION
  Report Type: Spontaneous
  Country: US (occurrence: US)
  Receive Date: 20171202
  Receipt Date: 20171202
  Transmission Date: 20180321
  Serious: No
  Sender: FDA-Public Use
  Company Number: US-ENDO PHARMACEUTICALS INC-2016-005334

PATIENT
  Age: 48 Year
  Sex: Male
  Weight: 102.15 kg

DRUGS (5)
  1. XIAFLEX [Suspect]
     Active Substance: COLLAGENASE CLOSTRIDIUM HISTOLYTICUM
     Indication: PEYRONIE^S DISEASE
  2. XIAFLEX [Suspect]
     Active Substance: COLLAGENASE CLOSTRIDIUM HISTOLYTICUM
     Route: 026
     Dates: start: 201605
  3. XIAFLEX [Suspect]
     Active Substance: COLLAGENASE CLOSTRIDIUM HISTOLYTICUM
     Route: 026
     Dates: start: 20160329
  4. XIAFLEX [Suspect]
     Active Substance: COLLAGENASE CLOSTRIDIUM HISTOLYTICUM
     Route: 026
     Dates: start: 20160714, end: 20160714
  5. XIAFLEX [Suspect]
     Active Substance: COLLAGENASE CLOSTRIDIUM HISTOLYTICUM
     Route: 026
     Dates: start: 20160712

REACTIONS (5)
  - Penile contusion [Recovered/Resolved]
  - Condition aggravated [Not Recovered/Not Resolved]
  - Capillary fragility [Recovering/Resolving]
  - Peyronie^s disease [Not Recovered/Not Resolved]
  - Drug ineffective [Not Recovered/Not Resolved]

NARRATIVE: CASE EVENT DATE: 2016
